FAERS Safety Report 5763288-0 (Version None)
Quarter: 2008Q2

REPORT INFORMATION
  Report Type: 
  Country: None (occurrence: None)
  Receive Date: 20080602
  Receipt Date: 20080315
  Transmission Date: 20081010
  Serious: No
  Sender: FDA-Public Use
  Company Number: PHEH2008US02903

PATIENT
  Sex: Female

DRUGS (3)
  1. TEKTURNA [Suspect]
     Indication: HYPERTENSION
     Dosage: 150 MG, QD : 300 MG, QD : 150 MG, QD
     Dates: end: 20080201
  2. TEKTURNA [Suspect]
     Indication: HYPERTENSION
     Dosage: 150 MG, QD : 300 MG, QD : 150 MG, QD
     Dates: start: 20071201
  3. TEKTURNA [Suspect]
     Indication: HYPERTENSION
     Dosage: 150 MG, QD : 300 MG, QD : 150 MG, QD
     Dates: start: 20080201

REACTIONS (2)
  - ASTHENIA [None]
  - TREMOR [None]
